FAERS Safety Report 9725485 (Version 1)
Quarter: 2013Q4

REPORT INFORMATION
  Report Type: Spontaneous
  Country: US (occurrence: None)
  Receive Date: 20131127
  Receipt Date: 20131127
  Transmission Date: 20140711
  Serious: Yes (Other)
  Sender: FDA-Public Use
  Company Number: 13-04828

PATIENT
  Age: 54 Year
  Sex: Male
  Weight: 56.7 kg

DRUGS (6)
  1. ALBUTEROL SULFATE [Suspect]
     Indication: ASTHMA
     Dosage: 1 VIAL 7 TIMES DAILY054
  2. ALBUTEROL SULFATE [Suspect]
     Indication: CHRONIC OBSTRUCTIVE PULMONARY DISEASE
     Dosage: 1 VIAL 7 TIMES DAILY054
  3. ALBUTEROL SULFATE [Suspect]
     Indication: EMPHYSEMA
     Dosage: 1 VIAL 7 TIMES DAILY054
  4. ALBUTEROL SULFATE [Suspect]
  5. ALBUTEROL INHALER [Concomitant]
  6. OXYGEN [Concomitant]

REACTIONS (8)
  - Chest pain [None]
  - Headache [None]
  - Local swelling [None]
  - Dysgeusia [None]
  - Muscle spasms [None]
  - Muscle spasms [None]
  - Drug ineffective [None]
  - Skin discolouration [None]
